FAERS Safety Report 16107552 (Version 2)
Quarter: 2019Q2

REPORT INFORMATION
  Report Type: Spontaneous
  Country: US (occurrence: US)
  Receive Date: 20190322
  Receipt Date: 20190515
  Transmission Date: 20190711
  Serious: Yes (Other)
  Sender: FDA-Public Use
  Company Number: US-ASTRAZENECA-2019SE44716

PATIENT
  Age: 25333 Day
  Sex: Male
  Weight: 71.7 kg

DRUGS (10)
  1. PERCOCET [Concomitant]
     Active Substance: ACETAMINOPHEN\OXYCODONE HYDROCHLORIDE
     Indication: INTERVERTEBRAL DISC OPERATION
     Dosage: 7.5-325 MG
     Route: 048
  2. NICOTINE. [Concomitant]
     Active Substance: NICOTINE
     Dosage: 14MG/24HR, 1 PATCH TRANSDERMALLY EVERY 24 HOURS X6 WEEKS THEN STEP DOWN TO 7MG PATCH DOSE AFTER 2...
     Route: 062
  3. SPIRIVA [Concomitant]
     Active Substance: TIOTROPIUM BROMIDE MONOHYDRATE
     Dosage: 1.25 MCG/ACT, INHALE 2 PUFFS (2.5 MCG) BY MOUTH DAILY
     Route: 055
  4. CYCLOBENZAPRINE. [Concomitant]
     Active Substance: CYCLOBENZAPRINE
     Route: 048
  5. NITROGLYCERIN. [Concomitant]
     Active Substance: NITROGLYCERIN
     Route: 060
  6. BEVESPI AEROSPHERE [Suspect]
     Active Substance: FORMOTEROL FUMARATE\GLYCOPYRROLATE
     Indication: CHRONIC OBSTRUCTIVE PULMONARY DISEASE
     Dosage: 9MCG/4.8MCG 2 PUFFS TWICE A DAY
     Route: 055
     Dates: start: 20190311, end: 20190318
  7. ALBUTEROL. [Concomitant]
     Active Substance: ALBUTEROL
     Dosage: CFC FREE 90 MCG/INH
  8. TRAZODONE HYDROCHLORIDE. [Concomitant]
     Active Substance: TRAZODONE HYDROCHLORIDE
     Dosage: TAKE ONE TABLET DAILY 30 MINUTES BEFORE BEDTIME
     Route: 048
  9. TYLOX [Concomitant]
     Active Substance: ACETAMINOPHEN\OXYCODONE HYDROCHLORIDE
  10. NICOTINE. [Concomitant]
     Active Substance: NICOTINE
     Dosage: 7MG/24HR, 1 PATCH TRANSDERMALLY EVERY 24 HOURS X14 DAYS AFTER COMPLETING 6 WEEKS AT 14MG DOSE
     Route: 062

REACTIONS (8)
  - Lymphadenopathy [Unknown]
  - Chest pain [Recovered/Resolved]
  - Myocardial infarction [Unknown]
  - Wheezing [Unknown]
  - Pulmonary congestion [Unknown]
  - Angina pectoris [Unknown]
  - Burning sensation [Unknown]
  - Dyspnoea [Unknown]

NARRATIVE: CASE EVENT DATE: 20190313
